FAERS Safety Report 18773050 (Version 1)
Quarter: 2021Q1

REPORT INFORMATION
  Report Type: Spontaneous
  Country: US (occurrence: US)
  Receive Date: 20210121
  Receipt Date: 20210121
  Transmission Date: 20210419
  Serious: Yes (Hospitalization)
  Sender: FDA-Public Use
  Company Number: None

PATIENT
  Age: 49 Year
  Sex: Female
  Weight: 94.5 kg

DRUGS (9)
  1. SYNTHROID [Concomitant]
     Active Substance: LEVOTHYROXINE SODIUM
  2. URSODIOL. [Concomitant]
     Active Substance: URSODIOL
  3. COENZYME Q10 [Concomitant]
     Active Substance: DIETARY SUPPLEMENT\UBIDECARENONE
  4. VITAMIN D3 [Concomitant]
     Active Substance: CHOLECALCIFEROL
  5. LEXAPRO [Concomitant]
     Active Substance: ESCITALOPRAM OXALATE
  6. MEGARED JOINT CARE SUPPLEMENT [Concomitant]
  7. ENTYVIO [Suspect]
     Active Substance: VEDOLIZUMAB
     Indication: COLITIS ULCERATIVE
     Dosage: ?          QUANTITY:1 INFUSION;OTHER FREQUENCY:EVERY 6 WEEKS;?
     Route: 042
     Dates: start: 20200219, end: 20200910
  8. RESVERATROL [Concomitant]
     Active Substance: DIETARY SUPPLEMENT\RESVERATROL
  9. ELLAGIC ACID. [Concomitant]
     Active Substance: ELLAGIC ACID

REACTIONS (1)
  - Cholangitis sclerosing [None]

NARRATIVE: CASE EVENT DATE: 20200725
